FAERS Safety Report 11342357 (Version 2)
Quarter: 2015Q3

REPORT INFORMATION
  Report Type: Spontaneous
  Country: ZA (occurrence: ZA)
  Receive Date: 20150805
  Receipt Date: 20150814
  Transmission Date: 20151125
  Serious: Yes (Other)
  Sender: FDA-Public Use
  Company Number: ZA-BAYER-2015-391462

PATIENT
  Sex: Male

DRUGS (3)
  1. STIVARGA [Suspect]
     Active Substance: REGORAFENIB
     Indication: COLORECTAL CANCER
     Dosage: 4X40 MG (DAILY DOSE 160 MG)
     Route: 048
     Dates: start: 20150505
  2. STIVARGA [Suspect]
     Active Substance: REGORAFENIB
     Indication: COLORECTAL CANCER
     Dosage: 4X40 MG (DAILY DOSE 160 MG)
     Route: 048
     Dates: start: 20150703, end: 20150731
  3. STIVARGA [Suspect]
     Active Substance: REGORAFENIB
     Indication: COLORECTAL CANCER
     Dosage: 4X40 MG (DAILY DOSE 160 MG)
     Route: 048
     Dates: start: 20150603

REACTIONS (1)
  - Colorectal cancer [None]
